FAERS Safety Report 13052852 (Version 1)
Quarter: 2016Q4

REPORT INFORMATION
  Report Type: Spontaneous
  Country: SI (occurrence: SI)
  Receive Date: 20161221
  Receipt Date: 20161221
  Transmission Date: 20170207
  Serious: Yes (Other)
  Sender: FDA-Public Use
  Company Number: SI-ROCHE-1868990

PATIENT
  Age: 60 Year
  Sex: Male
  Weight: 82 kg

DRUGS (7)
  1. WELLBUTRIN [Concomitant]
     Active Substance: BUPROPION HYDROCHLORIDE
  2. MABTHERA [Suspect]
     Active Substance: RITUXIMAB
     Dosage: 7TH?WITH RATE OF 50-100 ML
     Route: 042
     Dates: start: 20161214
  3. PRENESSA [Concomitant]
     Active Substance: PERINDOPRIL
  4. ZYPREXA [Concomitant]
     Active Substance: OLANZAPINE
  5. LAMICTAL [Concomitant]
     Active Substance: LAMOTRIGINE
  6. MIRAPEXIN [Concomitant]
     Active Substance: PRAMIPEXOLE
  7. MABTHERA [Suspect]
     Active Substance: RITUXIMAB
     Indication: RHEUMATOID ARTHRITIS
     Dosage: 500 MG CONCENTRATE
     Route: 042

REACTIONS (1)
  - Nasal congestion [Recovered/Resolved]

NARRATIVE: CASE EVENT DATE: 20161214
